FAERS Safety Report 16885282 (Version 1)
Quarter: 2019Q4

REPORT INFORMATION
  Report Type: Report from Study
  Country: None (occurrence: CO)
  Receive Date: 20191004
  Receipt Date: 20191004
  Transmission Date: 20200122
  Serious: Yes (Hospitalization)
  Sender: FDA-Public Use
  Company Number: CO-ABBVIE-19K-036-2950900-00

PATIENT
  Age: 70 Year
  Sex: Male
  Weight: 49 kg

DRUGS (1)
  1. HUMIRA [Suspect]
     Active Substance: ADALIMUMAB
     Indication: COLITIS ULCERATIVE
     Route: 058
     Dates: end: 20190506

REACTIONS (4)
  - Pain [Recovering/Resolving]
  - Fistula [Recovering/Resolving]
  - Thrombosis [Recovering/Resolving]
  - Culture urine positive [Unknown]

NARRATIVE: CASE EVENT DATE: 201909
